FAERS Safety Report 7427213-9 (Version None)
Quarter: 2011Q2

REPORT INFORMATION
  Report Type: 
  Country: None (occurrence: None)
  Receive Date: 20110420
  Receipt Date: 20110413
  Transmission Date: 20111010
  Serious: No
  Sender: FDA-Public Use
  Company Number: US-PFIZER INC-2011082263

PATIENT
  Sex: Male

DRUGS (4)
  1. PLAVIX [Concomitant]
     Dosage: UNK
  2. FLOVENT [Concomitant]
     Dosage: UNK
  3. ARTHROTEC [Suspect]
     Dosage: UNK
  4. PRILOSEC [Concomitant]
     Dosage: UNK

REACTIONS (1)
  - PAIN IN EXTREMITY [None]
